FAERS Safety Report 6865766-X (Version None)
Quarter: 2010Q3

REPORT INFORMATION
  Report Type: 
  Country: None (occurrence: None)
  Receive Date: 20100721
  Receipt Date: 20080529
  Transmission Date: 20110219
  Serious: No
  Sender: FDA-Public Use
  Company Number: US-PFIZER INC-2008037471

PATIENT
  Sex: Male
  Weight: 81.818 kg

DRUGS (7)
  1. CHANTIX [Suspect]
     Indication: SMOKING CESSATION THERAPY
     Route: 048
     Dates: start: 20080125
  2. GEODON [Concomitant]
     Indication: PSYCHOTIC DISORDER
  3. CALCIUM [Concomitant]
  4. VITAMIN B [Concomitant]
  5. VITAMIN C [Concomitant]
  6. ZANTAC [Concomitant]
     Indication: GASTROOESOPHAGEAL REFLUX DISEASE
  7. TRAZODONE HYDROCHLORIDE [Concomitant]

REACTIONS (2)
  - PARAESTHESIA [None]
  - TREMOR [None]
